FAERS Safety Report 17413835 (Version 1)
Quarter: 2020Q1

REPORT INFORMATION
  Report Type: Spontaneous
  Country: US (occurrence: US)
  Receive Date: 20200213
  Receipt Date: 20200213
  Transmission Date: 20200409
  Serious: Yes (Other)
  Sender: FDA-Public Use
  Company Number: US-ASTRAZENECA-2019SE57612

PATIENT
  Age: 52 Year
  Sex: Female

DRUGS (3)
  1. METFORMIN [Suspect]
     Active Substance: METFORMIN HYDROCHLORIDE
     Route: 065
  2. DAPAGLIFLOZIN. [Suspect]
     Active Substance: DAPAGLIFLOZIN
     Indication: TYPE 2 DIABETES MELLITUS
     Route: 048
  3. LIRAGLUTIDE [Suspect]
     Active Substance: LIRAGLUTIDE
     Indication: HYPERLIPIDAEMIA
     Route: 065

REACTIONS (1)
  - Euglycaemic diabetic ketoacidosis [Unknown]
